FAERS Safety Report 11062875 (Version 1)
Quarter: 2015Q2

REPORT INFORMATION
  Report Type: Spontaneous
  Country: DE (occurrence: DE)
  Receive Date: 20150424
  Receipt Date: 20150424
  Transmission Date: 20150821
  Serious: Yes (Other)
  Sender: FDA-Public Use
  Company Number: DE-PFIZER INC-2015132402

PATIENT
  Age: 34 Year
  Sex: Female

DRUGS (2)
  1. LYRICA [Suspect]
     Active Substance: PREGABALIN
     Indication: PAIN
     Dosage: 300 MG, 2X/DAY
     Route: 048
     Dates: start: 201312
  2. LYRICA [Suspect]
     Active Substance: PREGABALIN
     Dosage: 1500 MG, DAILY
     Route: 048
     Dates: start: 20131212

REACTIONS (10)
  - Drug tolerance [Not Recovered/Not Resolved]
  - Drug abuse [Not Recovered/Not Resolved]
  - Withdrawal syndrome [Unknown]
  - Restlessness [Unknown]
  - Condition aggravated [Unknown]
  - Pain [Unknown]
  - Panic attack [Unknown]
  - Diarrhoea [Unknown]
  - Drug dependence [Not Recovered/Not Resolved]
  - Dry mouth [Unknown]

NARRATIVE: CASE EVENT DATE: 20131212
